FAERS Safety Report 4317244-X (Version None)
Quarter: 2004Q1

REPORT INFORMATION
  Report Type: 
  Country: None (occurrence: None)
  Receive Date: 20040312
  Receipt Date: 20040227
  Transmission Date: 20041129
  Serious: Yes (Other)
  Sender: FDA-Public Use
  Company Number: 2004014353

PATIENT
  Age: 49 Year
  Sex: Male

DRUGS (3)
  1. NORVASC [Suspect]
     Indication: HYPERTENSION
     Dosage: 5 MG ORAL
     Route: 048
     Dates: start: 19990518, end: 20040210
  2. BISOPROLOL FUMARATE [Concomitant]
  3. LICORICE/PEONY (LIQUORICE) [Concomitant]

REACTIONS (2)
  - CONVULSION [None]
  - MUSCLE CRAMP [None]
